FAERS Safety Report 9269331 (Version 1)
Quarter: 2013Q2

REPORT INFORMATION
  Report Type: Spontaneous
  Country: GB (occurrence: GB)
  Receive Date: 20130503
  Receipt Date: 20130503
  Transmission Date: 20140414
  Serious: Yes (Other)
  Sender: FDA-Public Use
  Company Number: GB-ROCHE-1220455

PATIENT
  Sex: Female

DRUGS (1)
  1. HERCEPTIN [Suspect]
     Indication: PRODUCT USED FOR UNKNOWN INDICATION
     Route: 042

REACTIONS (7)
  - Neuropathy peripheral [Recovering/Resolving]
  - Tooth extraction [Unknown]
  - Headache [Unknown]
  - Fatigue [Unknown]
  - Oral pain [Unknown]
  - Lip dry [Unknown]
  - Skin fissures [Unknown]
